FAERS Safety Report 18549010 (Version 1)
Quarter: 2020Q4

REPORT INFORMATION
  Report Type: Spontaneous
  Country: DE (occurrence: DE)
  Receive Date: 20201126
  Receipt Date: 20201126
  Transmission Date: 20210114
  Serious: Yes (Other)
  Sender: FDA-Public Use
  Company Number: DE-TEVA-2020-DE-1851278

PATIENT
  Age: 26 Year
  Sex: Male

DRUGS (4)
  1. TEMOZOLOMIDE. [Suspect]
     Active Substance: TEMOZOLOMIDE
     Indication: ANAPLASTIC ASTROCYTOMA
     Dosage: 500 MILLIGRAM DAILY;
     Route: 065
  2. HYDROXYUREA. [Suspect]
     Active Substance: HYDROXYUREA
     Indication: ANAPLASTIC ASTROCYTOMA
     Dosage: 500 MILLIGRAM DAILY;
     Route: 048
  3. DEXAMETHASONE. [Suspect]
     Active Substance: DEXAMETHASONE
     Indication: ANAPLASTIC ASTROCYTOMA
     Dosage: 4-16 MG/DAILY
     Route: 065
  4. BEVACIZUMAB. [Suspect]
     Active Substance: BEVACIZUMAB
     Indication: ANAPLASTIC ASTROCYTOMA
     Dosage: SYSTEMIC THERAPY 10 MG/KG EVERY TWO WEEKS FOR ABOUT 6 MONTHS
     Route: 065

REACTIONS (2)
  - Skin striae [Unknown]
  - Skin necrosis [Unknown]
